FAERS Safety Report 8367607-0 (Version None)
Quarter: 2012Q2

REPORT INFORMATION
  Report Type: 
  Country: None (occurrence: None)
  Receive Date: 20120517
  Receipt Date: 20120507
  Transmission Date: 20120825
  Serious: Yes (Other)
  Sender: FDA-Public Use
  Company Number: US-ELI_LILLY_AND_COMPANY-US201205004149

PATIENT
  Sex: Female

DRUGS (2)
  1. EFFIENT [Suspect]
     Dosage: UNK, UNKNOWN
     Route: 065
     Dates: start: 20101201, end: 20120506
  2. ASPIRIN [Concomitant]

REACTIONS (5)
  - HAEMORRHAGE [None]
  - MENORRHAGIA [None]
  - ANGINA PECTORIS [None]
  - CONTUSION [None]
  - CORONARY ARTERY OCCLUSION [None]
